FAERS Safety Report 10630030 (Version 1)
Quarter: 2014Q4

REPORT INFORMATION
  Report Type: Spontaneous
  Country: US (occurrence: US)
  Receive Date: 20141205
  Receipt Date: 20141205
  Transmission Date: 20150529
  Serious: Yes (Hospitalization)
  Sender: FDA-Public Use
  Company Number: US-BRISTOL-MYERS SQUIBB COMPANY-21247937

PATIENT
  Age: 74 Year
  Sex: Male

DRUGS (16)
  1. LISINOPRIL. [Concomitant]
     Active Substance: LISINOPRIL
  2. VITAMIN D3 [Concomitant]
     Active Substance: CHOLECALCIFEROL
  3. IBUPROFEN. [Concomitant]
     Active Substance: IBUPROFEN
  4. SPRYCEL [Suspect]
     Active Substance: DASATINIB
     Dosage: DOSE DECREASED TO 80MG ON 20FEB14
     Dates: start: 20140101
  5. VITAMIN C [Concomitant]
     Active Substance: ASCORBIC ACID
  6. ESCITALOPRAM [Concomitant]
     Active Substance: ESCITALOPRAM OXALATE
  7. ASPIRIN. [Concomitant]
     Active Substance: ASPIRIN
  8. CARVEDILOL. [Concomitant]
     Active Substance: CARVEDILOL
  9. CARBAMAZEPINE. [Concomitant]
     Active Substance: CARBAMAZEPINE
  10. OMEPRAZOLE. [Concomitant]
     Active Substance: OMEPRAZOLE
  11. AMLODIPINE [Concomitant]
     Active Substance: AMLODIPINE BESYLATE
  12. TRAVATAN [Concomitant]
     Active Substance: TRAVOPROST
  13. NIACIN. [Concomitant]
     Active Substance: NIACIN
  14. MUCINEX [Concomitant]
     Active Substance: GUAIFENESIN
  15. TORASEMIDE [Concomitant]
     Active Substance: TORSEMIDE
  16. SIMVASTATIN. [Concomitant]
     Active Substance: SIMVASTATIN

REACTIONS (2)
  - Adverse event [Unknown]
  - Red blood cell count abnormal [Unknown]
